FAERS Safety Report 23092064 (Version 2)
Quarter: 2023Q4

REPORT INFORMATION
  Report Type: Spontaneous
  Country: US (occurrence: US)
  Receive Date: 20231021
  Receipt Date: 20231027
  Transmission Date: 20240110
  Serious: Yes (Other)
  Sender: FDA-Public Use
  Company Number: US-AMGEN-USASP2023184661

PATIENT

DRUGS (2)
  1. LUMAKRAS [Suspect]
     Active Substance: SOTORASIB
     Indication: Non-small cell lung cancer
     Dosage: UNK, BY MOUTH
     Route: 048
  2. LUMAKRAS [Suspect]
     Active Substance: SOTORASIB
     Dosage: UNK, REDUCTIONS IN DOSAGE BY MOUTH
     Route: 048

REACTIONS (2)
  - Hepatotoxicity [Unknown]
  - Diarrhoea [Unknown]

NARRATIVE: CASE EVENT DATE: 20230701
